FAERS Safety Report 23497754 (Version 1)
Quarter: 2024Q1

REPORT INFORMATION
  Report Type: Other
  Country: NL (occurrence: None)
  Receive Date: 20240208
  Receipt Date: 20240208
  Transmission Date: 20240409
  Serious: Yes (Other)
  Sender: FDA-Public Use
  Company Number: NL-ROCHE-3503731

PATIENT

DRUGS (4)
  1. OSELTAMIVIR [Suspect]
     Active Substance: OSELTAMIVIR
     Indication: Antiviral treatment
     Route: 065
  2. OSELTAMIVIR [Suspect]
     Active Substance: OSELTAMIVIR
     Indication: Respiratory disorder
  3. PREDNISONE [Suspect]
     Active Substance: PREDNISONE
     Indication: Respiratory disorder
     Route: 065
  4. ALBUTEROL [Suspect]
     Active Substance: ALBUTEROL
     Indication: Obstructive airways disorder
     Route: 065

REACTIONS (7)
  - Acute kidney injury [Unknown]
  - Dyspnoea [Unknown]
  - Dizziness [Unknown]
  - Syncope [Unknown]
  - Fall [Unknown]
  - Dehydration [Unknown]
  - Gastrointestinal haemorrhage [Unknown]
